FAERS Safety Report 4324475-1 (Version None)
Quarter: 2004Q1

REPORT INFORMATION
  Report Type: 
  Country: None (occurrence: None)
  Receive Date: 20040326
  Receipt Date: 20040218
  Transmission Date: 20041129
  Serious: Yes (Disabling, Other)
  Sender: FDA-Public Use
  Company Number: US-GLAXOSMITHKLINE-A0498820A

PATIENT
  Age: 10 Year
  Sex: Female
  Weight: 35.9 kg

DRUGS (3)
  1. ADVAIR DISKUS 100/50 [Suspect]
     Indication: ASTHMA
     Dosage: 1PUFF TWICE PER DAY
     Route: 055
     Dates: start: 20030301, end: 20031201
  2. ALBUTEROL [Concomitant]
     Indication: ASTHMA
     Route: 055
  3. SINGULAIR [Concomitant]
     Indication: ASTHMA
     Dosage: 5MG AT NIGHT
     Route: 048

REACTIONS (1)
  - VAGINAL CANDIDIASIS [None]
